FAERS Safety Report 23512701 (Version 1)
Quarter: 2024Q1

REPORT INFORMATION
  Report Type: Spontaneous
  Country: FR (occurrence: FR)
  Receive Date: 20240212
  Receipt Date: 20240212
  Transmission Date: 20240410
  Serious: Yes (Other)
  Sender: FDA-Public Use
  Company Number: None

PATIENT
  Age: 2 Year
  Sex: Female
  Weight: 13.649 kg

DRUGS (9)
  1. CLONAZEPAM [Suspect]
     Active Substance: CLONAZEPAM
     Indication: Epilepsy
     Dosage: FOR 24 HRS (I.E. 2.8 MG/D). REDUCED OVER THE FOLLOWING 24 HOURS, BY THE SENIOR INTERN.
     Route: 042
     Dates: start: 20230908
  2. CLONAZEPAM [Suspect]
     Active Substance: CLONAZEPAM
     Indication: Epilepsy
     Route: 042
     Dates: start: 20230908
  3. CLONAZEPAM [Suspect]
     Active Substance: CLONAZEPAM
     Indication: Epilepsy
     Dosage: PER 24 HRS. AT 8 P.M., A NEW PRESCRIPTION IS MADE BY THE INTERN ON CALL, ACCORDING TO THE FOLLOWI...
     Route: 042
     Dates: start: 20230908
  4. FENFLURAMINE [Concomitant]
     Active Substance: FENFLURAMINE
     Dosage: MORNING AND EVENING?DAILY DOSE: 3 MILLILITRE
  5. VALPROATE SODIUM [Concomitant]
     Active Substance: VALPROATE SODIUM
     Dosage: MORNING AND EVENING.?DAILY DOSE: 200 MILLIGRAM
  6. Likosam [Concomitant]
     Dosage: MORNING, NOON AND EVENING EVERY DAY.?DAILY DOSE: 9 MILLILITRE
  7. Likosam [Concomitant]
     Dosage: INCREASE TO 4 ML MORNING AND NOON AND 5 ML IN THE EVENING DURING INFECTIOUS EPISODES.
  8. DIACOMIT [Concomitant]
     Active Substance: STIRIPENTOL
     Dosage: MORNING AND EVENING.?DAILY DOSE: 600 MILLIGRAM
  9. MIDAZOLAM HYDROCHLORIDE [Concomitant]
     Active Substance: MIDAZOLAM HYDROCHLORIDE
     Dosage: INTRA-JUGAL IN CASE OF CRISIS.

REACTIONS (3)
  - Incorrect dose administered [Recovered/Resolved]
  - Nystagmus [Recovered/Resolved]
  - Dyskinesia [Recovered/Resolved]

NARRATIVE: CASE EVENT DATE: 20230910
